FAERS Safety Report 5609673-9 (Version None)
Quarter: 2008Q1

REPORT INFORMATION
  Report Type: 
  Country: None (occurrence: None)
  Receive Date: 20080131
  Receipt Date: 20080128
  Transmission Date: 20080703
  Serious: Yes (Life-Threatening, Hospitalization)
  Sender: FDA-Public Use
  Company Number: B0503790A

PATIENT
  Age: 72 Year
  Sex: Female
  Weight: 71 kg

DRUGS (7)
  1. LAPATINIB [Suspect]
     Dosage: 1500MG PER DAY
     Route: 048
     Dates: start: 20070620, end: 20071106
  2. TAMOXIFEN [Suspect]
     Dosage: 20MG PER DAY
     Route: 048
     Dates: start: 20070523, end: 20071106
  3. DAFLON [Concomitant]
     Dosage: 500MG PER DAY
     Route: 048
     Dates: start: 20040311
  4. GLICLAZIDE [Concomitant]
     Dosage: 60MG PER DAY
     Route: 048
     Dates: start: 19990601
  5. MIXTARD HUMAN 70/30 [Concomitant]
     Route: 058
     Dates: start: 19990601
  6. FRUSAMIL [Concomitant]
     Indication: PROPHYLAXIS
     Dosage: 45MG PER DAY
     Route: 048
     Dates: start: 20040311
  7. NOVONORM [Concomitant]
     Dosage: 2MG PER DAY
     Route: 048
     Dates: start: 19990601

REACTIONS (2)
  - DYSPNOEA [None]
  - PULMONARY EMBOLISM [None]
